FAERS Safety Report 8187012-X (Version None)
Quarter: 2012Q1

REPORT INFORMATION
  Report Type: 
  Country: None (occurrence: None)
  Receive Date: 20120306
  Receipt Date: 20120228
  Transmission Date: 20120608
  Serious: Yes (Other)
  Sender: FDA-Public Use
  Company Number: GB-PFIZER INC-2012054915

PATIENT
  Age: 73 Year
  Sex: Male
  Weight: 57.143 kg

DRUGS (1)
  1. LIPITOR [Suspect]
     Dosage: 80 MG, 1X/DAY
     Dates: end: 20120201

REACTIONS (11)
  - EPISTAXIS [None]
  - EYE HAEMORRHAGE [None]
  - LACERATION [None]
  - SCRATCH [None]
  - TONGUE DISCOLOURATION [None]
  - ABNORMAL DREAMS [None]
  - MALAISE [None]
  - BLEEDING TIME PROLONGED [None]
  - GASTROOESOPHAGEAL REFLUX DISEASE [None]
  - CONTUSION [None]
  - WEIGHT DECREASED [None]
